FAERS Safety Report 25006618 (Version 1)
Quarter: 2025Q1

REPORT INFORMATION
  Report Type: Spontaneous
  Country: US (occurrence: US)
  Receive Date: 20250225
  Receipt Date: 20250225
  Transmission Date: 20250409
  Serious: No
  Sender: ROCHE
  Company Number: US-ROCHE-10000212416

PATIENT
  Sex: Male

DRUGS (6)
  1. CELLCEPT [Suspect]
     Active Substance: MYCOPHENOLATE MOFETIL
     Indication: Interstitial lung disease
     Route: 065
  2. pantoprazole sol 40 mg [Concomitant]
  3. prolia sos 60mg/ml [Concomitant]
  4. Atorvastatin tab 80 mg [Concomitant]
  5. omeprazole POW [Concomitant]
  6. Sodium fluor POW [Concomitant]

REACTIONS (3)
  - Diarrhoea [Unknown]
  - Blood pressure increased [Unknown]
  - Off label use [Unknown]
